FAERS Safety Report 4318324-5 (Version None)
Quarter: 2004Q1

REPORT INFORMATION
  Report Type: 
  Country: None (occurrence: None)
  Receive Date: 20040317
  Receipt Date: 20040310
  Transmission Date: 20041129
  Serious: Yes (Life-Threatening, Hospitalization)
  Sender: FDA-Public Use
  Company Number: WAES 0403FRA00037

PATIENT
  Age: 80 Year
  Sex: Male
  Weight: 75 kg

DRUGS (6)
  1. ACETAMINOPHEN [Concomitant]
     Route: 048
     Dates: end: 20031227
  2. ALFUZOSIN HYDROCHLORIDE [Concomitant]
     Route: 048
  3. CLOPIDOGREL BISULFATE [Concomitant]
     Indication: THROMBOSIS PROPHYLAXIS
     Route: 048
     Dates: start: 20031201, end: 20031227
  4. FENSPIRIDE HYDROCHLORIDE [Concomitant]
     Route: 048
  5. FUROSEMIDE [Concomitant]
     Route: 048
     Dates: end: 20031227
  6. VIOXX [Suspect]
     Indication: SPINAL OSTEOARTHRITIS
     Route: 048
     Dates: start: 20031215, end: 20031227

REACTIONS (2)
  - PURPURA [None]
  - THROMBOCYTOPENIA [None]
